FAERS Safety Report 5605664-2 (Version None)
Quarter: 2008Q1

REPORT INFORMATION
  Report Type: 
  Country: None (occurrence: None)
  Receive Date: 20080123
  Receipt Date: 20080108
  Transmission Date: 20080703
  Serious: Yes (Other)
  Sender: FDA-Public Use
  Company Number: A-CH2007-18778

PATIENT
  Age: 72 Year

DRUGS (1)
  1. TRACLEER [Suspect]
     Indication: PULMONARY HYPERTENSION
     Dosage: 62.5 MG, BID, ORAL
     Route: 048
     Dates: start: 20071019, end: 20071129

REACTIONS (4)
  - LIVER DISORDER [None]
  - MYOSITIS [None]
  - OEDEMA [None]
  - RHABDOMYOLYSIS [None]
